FAERS Safety Report 7237470-X (Version None)
Quarter: 2011Q1

REPORT INFORMATION
  Report Type: 
  Country: None (occurrence: None)
  Receive Date: 20110121
  Receipt Date: 20110111
  Transmission Date: 20110831
  Serious: Yes (Other)
  Sender: FDA-Public Use
  Company Number: JP-JNJFOC-20110104877

PATIENT
  Sex: Female

DRUGS (1)
  1. INFLIXIMAB [Suspect]
     Indication: TAKAYASU'S ARTERITIS
     Dosage: RECEIVED 11 INFUSIONS
     Route: 042

REACTIONS (1)
  - INFUSION RELATED REACTION [None]
